FAERS Safety Report 7450271-2 (Version None)
Quarter: 2011Q2

REPORT INFORMATION
  Report Type: 
  Country: None (occurrence: None)
  Receive Date: 20110422
  Receipt Date: 20110407
  Transmission Date: 20111010
  Serious: Yes (Hospitalization)
  Sender: FDA-Public Use
  Company Number: AUR-APL-2011-01235

PATIENT
  Age: 61 Year
  Sex: Female

DRUGS (4)
  1. AMLODIPINE BESYLATE [Suspect]
     Indication: HYPERTENSION
     Dosage: 5 MG DAILY, ORAL
     Route: 048
     Dates: start: 20100801, end: 20101201
  2. AMLODIPINE BESYLATE AND OLMESARTAN MEDOXOMIL [Suspect]
     Indication: HYPERTENSION
     Dosage: 40/10MG, DAILY, ORAL
     Route: 048
     Dates: start: 20100801, end: 20101201
  3. RAMIPRIL [Suspect]
     Indication: HYPERTENSION
     Dosage: 10 MG, DAILY, ORAL
     Route: 048
     Dates: start: 20100801
  4. MANIDIPINE [Suspect]
     Indication: HYPERTENSION
     Dosage: 10MG, DAILY, ORAL
     Route: 048
     Dates: start: 20100801, end: 20101201

REACTIONS (5)
  - HYPERAEMIA [None]
  - OEDEMA PERIPHERAL [None]
  - DRUG INEFFECTIVE [None]
  - BLOOD PRESSURE SYSTOLIC INCREASED [None]
  - PAIN IN EXTREMITY [None]
